FAERS Safety Report 23545343 (Version 2)
Quarter: 2024Q3

REPORT INFORMATION
  Report Type: Report from Study
  Country: IE (occurrence: IE)
  Receive Date: 20240220
  Receipt Date: 20240807
  Transmission Date: 20241016
  Serious: Yes (Hospitalization, Other)
  Sender: NOVARTIS
  Company Number: IE-002147023-NVSC2023IE247502

PATIENT
  Age: 44 Year
  Sex: Female

DRUGS (1)
  1. KISQALI [Suspect]
     Active Substance: RIBOCICLIB
     Indication: Breast cancer metastatic
     Dosage: 600 MG
     Route: 048

REACTIONS (13)
  - Heart rate increased [Recovering/Resolving]
  - Pyrexia [Recovering/Resolving]
  - Illness [Recovering/Resolving]
  - Respiratory distress [Recovering/Resolving]
  - Pharyngeal haemorrhage [Unknown]
  - Nausea [Recovered/Resolved]
  - Diarrhoea [Unknown]
  - Contusion [Recovered/Resolved]
  - Dry mouth [Unknown]
  - Rash pruritic [Recovering/Resolving]
  - Erythema [Recovering/Resolving]
  - Skin disorder [Unknown]
  - Pharyngeal oedema [Unknown]
